FAERS Safety Report 6594237-3 (Version None)
Quarter: 2010Q1

REPORT INFORMATION
  Report Type: 
  Country: None (occurrence: None)
  Receive Date: 20100222
  Receipt Date: 20100217
  Transmission Date: 20100710
  Serious: Yes (Hospitalization)
  Sender: FDA-Public Use
  Company Number: NL-MERCK-1002NLD00009

PATIENT
  Age: 51 Year
  Sex: Female
  Weight: 72 kg

DRUGS (2)
  1. SINGULAIR [Suspect]
     Indication: ASTHMA
     Route: 048
     Dates: start: 20080101, end: 20100209
  2. SIMVASTATIN [Suspect]
     Route: 048
     Dates: start: 20040101, end: 20090101

REACTIONS (2)
  - HEPATIC FIBROSIS [None]
  - LIVER FUNCTION TEST ABNORMAL [None]
